FAERS Safety Report 8612055-9 (Version None)
Quarter: 2012Q3

REPORT INFORMATION
  Report Type: 
  Country: None (occurrence: None)
  Receive Date: 20120822
  Receipt Date: 20120815
  Transmission Date: 20120928
  Serious: Yes (Other)
  Sender: FDA-Public Use
  Company Number: JP-CELGENEUS-087-CCAZA-11053504

PATIENT
  Sex: Male
  Weight: 71 kg

DRUGS (3)
  1. OLMESARTAN MEDOXOMIL [Concomitant]
     Route: 065
  2. VIDAZA [Suspect]
     Dosage: 75 MILLIGRAM/SQ. METER
     Route: 058
     Dates: start: 20110415, end: 20110421
  3. VIDAZA [Suspect]
     Dosage: 75 MILLIGRAM/SQ. METER
     Route: 058
     Dates: start: 20110513, end: 20110518

REACTIONS (3)
  - ARRHYTHMIA [None]
  - ERYTHEMA [None]
  - HYPOTENSION [None]
